FAERS Safety Report 21513399 (Version 4)
Quarter: 2023Q2

REPORT INFORMATION
  Report Type: Report from Study
  Country: CN (occurrence: CN)
  Receive Date: 20221027
  Receipt Date: 20230418
  Transmission Date: 20230721
  Serious: Yes (Other)
  Sender: FDA-Public Use
  Company Number: CN-NOVARTISPH-NVSC2022CN238392

PATIENT
  Age: 57 Year
  Sex: Male
  Weight: 60 kg

DRUGS (68)
  1. SANDOSTATIN LAR DEPOT [Suspect]
     Active Substance: OCTREOTIDE ACETATE
     Indication: Auditory nerve disorder
     Dosage: 4 ML, QD (INDICATION- TROPHIC NERVE)
     Route: 041
     Dates: start: 20221003
  2. SANDOSTATIN LAR DEPOT [Suspect]
     Active Substance: OCTREOTIDE ACETATE
  3. SANDOSTATIN LAR DEPOT [Suspect]
     Active Substance: OCTREOTIDE ACETATE
  4. AVIBACTAM SODIUM [Suspect]
     Active Substance: AVIBACTAM SODIUM
     Indication: Pneumonia
     Dosage: 2.5 G, Q8H
     Route: 041
     Dates: start: 20221008
  5. PHENOBARBITAL SODIUM [Suspect]
     Active Substance: PHENOBARBITAL SODIUM
     Indication: Prophylaxis
     Dosage: 100 MG, Q8H
     Route: 030
     Dates: start: 20221004, end: 20221007
  6. PHENOBARBITAL SODIUM [Suspect]
     Active Substance: PHENOBARBITAL SODIUM
     Indication: Dysphoria
  7. AVIBACTAM SODIUM\CEFTAZIDIME [Suspect]
     Active Substance: AVIBACTAM SODIUM\CEFTAZIDIME
     Indication: Pneumonia
     Dosage: 2.5 MG, Q8H
     Route: 065
     Dates: start: 20221008
  8. ALBUTEROL SULFATE [Concomitant]
     Active Substance: ALBUTEROL SULFATE
     Indication: Product used for unknown indication
     Dosage: UNK
     Route: 065
     Dates: start: 20221003, end: 20221007
  9. ALBUTEROL SULFATE [Concomitant]
     Active Substance: ALBUTEROL SULFATE
     Dosage: UNK
     Route: 065
     Dates: start: 20221007, end: 20221027
  10. MANNITOL [Concomitant]
     Active Substance: MANNITOL
     Indication: Dehydration
     Dosage: UNK
     Route: 041
     Dates: start: 20221003, end: 20221016
  11. DEXAMETHASONE SODIUM PHOSPHATE [Concomitant]
     Active Substance: DEXAMETHASONE SODIUM PHOSPHATE
     Indication: Prophylaxis
     Dosage: UNK
     Route: 041
     Dates: start: 20221003, end: 20221003
  12. DEXAMETHASONE SODIUM PHOSPHATE [Concomitant]
     Active Substance: DEXAMETHASONE SODIUM PHOSPHATE
     Indication: Cooling therapy
     Dosage: UNK
     Route: 065
     Dates: start: 20221003, end: 20221007
  13. DEXAMETHASONE SODIUM PHOSPHATE [Concomitant]
     Active Substance: DEXAMETHASONE SODIUM PHOSPHATE
     Dosage: UNK
     Route: 065
     Dates: start: 20221003, end: 20221010
  14. DEXAMETHASONE SODIUM PHOSPHATE [Concomitant]
     Active Substance: DEXAMETHASONE SODIUM PHOSPHATE
     Dosage: UNK
     Route: 065
     Dates: start: 20221007, end: 20221007
  15. SODIUM LACTATE [Concomitant]
     Active Substance: SODIUM LACTATE
     Indication: Fluid replacement
     Dosage: UNK
     Route: 065
     Dates: start: 20221003, end: 20221009
  16. SODIUM LACTATE [Concomitant]
     Active Substance: SODIUM LACTATE
     Dosage: UNK
     Route: 041
     Dates: start: 20221008, end: 20221009
  17. POTASSIUM CHLORIDE [Concomitant]
     Active Substance: POTASSIUM CHLORIDE
     Indication: Mineral supplementation
     Dosage: UNK
     Route: 041
     Dates: start: 20221003, end: 20221008
  18. POTASSIUM CHLORIDE [Concomitant]
     Active Substance: POTASSIUM CHLORIDE
     Dosage: UNK
     Route: 041
     Dates: start: 20221003, end: 20221030
  19. OXIRACETAM [Concomitant]
     Active Substance: OXIRACETAM
     Indication: Therapeutic procedure
     Dosage: UNK
     Route: 040
     Dates: start: 20221003, end: 20221011
  20. VITAMIN B6 [Concomitant]
     Active Substance: PYRIDOXINE HYDROCHLORIDE
     Indication: Vitamin supplementation
     Dosage: UNK
     Route: 041
     Dates: start: 20221003, end: 20221030
  21. INSULIN NOS [Concomitant]
     Active Substance: INSULIN NOS
     Indication: Hypoglycaemia
     Dosage: UNK
     Route: 065
     Dates: start: 20221003, end: 20221010
  22. INSULIN NOS [Concomitant]
     Active Substance: INSULIN NOS
     Dosage: UNK
     Route: 065
     Dates: start: 20221003, end: 20221030
  23. HAEMOCOAGULASE [Concomitant]
     Indication: Haemostasis
     Dosage: UNK
     Route: 065
     Dates: start: 20221003, end: 20221005
  24. VALPROATE SODIUM [Concomitant]
     Active Substance: VALPROATE SODIUM
     Indication: Prophylaxis
     Dosage: UNK
     Route: 065
     Dates: start: 20221003, end: 20221006
  25. FAMOTIDINE [Concomitant]
     Active Substance: FAMOTIDINE
     Indication: Abdominal discomfort
     Dosage: UNK
     Route: 065
     Dates: start: 20221003, end: 20221008
  26. SUCCINYLATED GELATIN [Concomitant]
     Active Substance: SUCCINYLATED GELATIN
     Indication: Fluid replacement
     Dosage: UNK
     Route: 065
     Dates: start: 20221003, end: 20221017
  27. ACETYLCYSTEINE [Concomitant]
     Active Substance: ACETYLCYSTEINE
     Indication: Productive cough
     Dosage: UNK
     Route: 065
     Dates: start: 20221003, end: 20221007
  28. ACETYLCYSTEINE [Concomitant]
     Active Substance: ACETYLCYSTEINE
     Dosage: UNK
     Route: 065
     Dates: start: 20221007, end: 20221008
  29. BUDESONIDE [Concomitant]
     Active Substance: BUDESONIDE
     Indication: Productive cough
     Dosage: UNK
     Route: 065
     Dates: start: 20221003, end: 20221007
  30. BUDESONIDE [Concomitant]
     Active Substance: BUDESONIDE
     Dosage: UNK
     Route: 065
     Dates: start: 20221007, end: 20221027
  31. IPRATROPIUM BROMIDE [Concomitant]
     Active Substance: IPRATROPIUM BROMIDE\IPRATROPIUM BROMIDE ANHYDROUS
     Indication: Productive cough
     Dosage: UNK
     Route: 065
     Dates: start: 20221003, end: 20221007
  32. IPRATROPIUM BROMIDE [Concomitant]
     Active Substance: IPRATROPIUM BROMIDE\IPRATROPIUM BROMIDE ANHYDROUS
     Dosage: UNK
     Route: 065
     Dates: start: 20221007, end: 20221027
  33. DOLASETRON MESYLATE [Concomitant]
     Active Substance: DOLASETRON MESYLATE
     Indication: Antiemetic supportive care
     Dosage: UNK
     Route: 065
     Dates: start: 20221003, end: 20221007
  34. SODIUM BICARBONATE [Concomitant]
     Active Substance: SODIUM BICARBONATE
     Indication: Fluid replacement
     Dosage: UNK
     Route: 065
     Dates: start: 20221003
  35. LEVETIRACETAM [Concomitant]
     Active Substance: LEVETIRACETAM
     Indication: Prophylaxis
     Dosage: UNK
     Route: 065
     Dates: start: 20221006, end: 20221102
  36. DEXTROSE [Concomitant]
     Active Substance: DEXTROSE\DEXTROSE MONOHYDRATE
     Indication: Therapeutic procedure
     Dosage: UNK
     Route: 065
     Dates: start: 20221008, end: 20221010
  37. OMEPRAZOLE [Concomitant]
     Active Substance: OMEPRAZOLE
     Indication: Abdominal discomfort
     Dosage: UNK
     Route: 065
     Dates: start: 20221008, end: 20221028
  38. CEFUROXIME SODIUM [Concomitant]
     Active Substance: CEFUROXIME SODIUM
     Indication: Infection prophylaxis
     Dosage: UNK
     Route: 065
     Dates: start: 20221003, end: 20221003
  39. INDOMETHACIN [Concomitant]
     Active Substance: INDOMETHACIN
     Indication: Cooling therapy
     Dosage: UNK
     Route: 065
     Dates: start: 20221003, end: 20221006
  40. INDOMETHACIN [Concomitant]
     Active Substance: INDOMETHACIN
     Dosage: UNK
     Route: 065
     Dates: start: 20221003, end: 20221003
  41. INDOMETHACIN [Concomitant]
     Active Substance: INDOMETHACIN
     Dosage: UNK
     Route: 065
     Dates: start: 20221006, end: 20221006
  42. PROPOFOL [Concomitant]
     Active Substance: PROPOFOL
     Indication: Sedation
     Dosage: UNK
     Route: 065
     Dates: start: 20221003, end: 20221005
  43. PROPOFOL [Concomitant]
     Active Substance: PROPOFOL
     Dosage: UNK
     Route: 065
     Dates: start: 20221003, end: 20221004
  44. CHLORPROMAZINE [Concomitant]
     Active Substance: CHLORPROMAZINE
     Indication: Sedation
     Dosage: UNK
     Route: 065
     Dates: start: 20221007, end: 20221007
  45. CHLORPROMAZINE [Concomitant]
     Active Substance: CHLORPROMAZINE
     Indication: Cooling therapy
     Dosage: UNK
     Route: 065
     Dates: start: 20221007, end: 20221010
  46. CHLORPROMAZINE [Concomitant]
     Active Substance: CHLORPROMAZINE
     Dosage: UNK
     Route: 065
     Dates: start: 20221010, end: 20221010
  47. AMINOPHYLLINE [Concomitant]
     Active Substance: AMINOPHYLLINE
     Indication: Asthma
     Dosage: UNK
     Route: 065
     Dates: start: 20221007, end: 20221007
  48. FELODIPINE [Concomitant]
     Active Substance: FELODIPINE
     Indication: Depression
     Dosage: UNK
     Route: 065
     Dates: start: 20221007, end: 20221007
  49. FELODIPINE [Concomitant]
     Active Substance: FELODIPINE
     Dosage: UNK
     Route: 065
     Dates: start: 20221007, end: 20221009
  50. FELODIPINE [Concomitant]
     Active Substance: FELODIPINE
     Dosage: UNK
     Route: 065
     Dates: start: 20221007, end: 20221010
  51. FELODIPINE [Concomitant]
     Active Substance: FELODIPINE
     Dosage: UNK
     Route: 065
     Dates: start: 20221008, end: 20221008
  52. FELODIPINE [Concomitant]
     Active Substance: FELODIPINE
     Dosage: UNK
     Route: 065
     Dates: start: 20221009, end: 20221009
  53. FELODIPINE [Concomitant]
     Active Substance: FELODIPINE
     Dosage: UNK
     Route: 065
     Dates: start: 20221010, end: 20221010
  54. PROMETHAZINE [Concomitant]
     Active Substance: PROMETHAZINE HYDROCHLORIDE
     Indication: Sedation
     Dosage: UNK
     Route: 065
     Dates: start: 20221007, end: 20221007
  55. PROMETHAZINE [Concomitant]
     Active Substance: PROMETHAZINE HYDROCHLORIDE
     Indication: Cooling therapy
     Dosage: UNK
     Route: 065
     Dates: start: 20221007, end: 20221010
  56. PROMETHAZINE [Concomitant]
     Active Substance: PROMETHAZINE HYDROCHLORIDE
     Dosage: UNK
     Route: 065
     Dates: start: 20221010, end: 20221010
  57. IBUPROFEN [Concomitant]
     Active Substance: IBUPROFEN
     Indication: Cooling therapy
     Dosage: UNK
     Route: 065
     Dates: start: 20221008, end: 20221009
  58. IBUPROFEN [Concomitant]
     Active Substance: IBUPROFEN
     Dosage: UNK
     Route: 065
     Dates: start: 20221008, end: 20221012
  59. IBUPROFEN [Concomitant]
     Active Substance: IBUPROFEN
     Dosage: UNK
     Route: 065
     Dates: start: 20221011
  60. ALPRAZOLAM [Concomitant]
     Active Substance: ALPRAZOLAM
     Indication: Sedation
     Dosage: UNK
     Route: 065
     Dates: start: 20021009, end: 20221009
  61. NITROGLYCERIN [Concomitant]
     Active Substance: NITROGLYCERIN
     Indication: Depression
     Dosage: UNK
     Route: 065
     Dates: start: 20221009, end: 20221009
  62. AMIKACIN SULFATE [Concomitant]
     Active Substance: AMIKACIN SULFATE
     Indication: Pneumonia
     Dosage: UNK
     Route: 065
     Dates: start: 20221008, end: 20221010
  63. LINEZOLID [Concomitant]
     Active Substance: LINEZOLID
     Indication: Pneumonia
     Dosage: UNK
     Route: 065
     Dates: start: 20221008, end: 20221010
  64. COMPOUND AMINO ACID (14AA) [Concomitant]
     Indication: Fluid replacement
     Dosage: UNK
     Route: 065
     Dates: start: 20221003, end: 20221008
  65. COMPOUND AMINO ACID (14AA) [Concomitant]
     Dosage: UNK
     Route: 065
     Dates: start: 20221003, end: 20221012
  66. ENTERAL [Concomitant]
     Indication: Product used for unknown indication
     Dosage: UNK
     Route: 065
     Dates: start: 20221006
  67. VITAMIN C [Concomitant]
     Active Substance: ASCORBIC ACID
     Indication: Vitamin supplementation
     Dosage: UNK
     Route: 065
     Dates: start: 20221010
  68. LIDOCAINE HYDROCHLORIDE [Concomitant]
     Active Substance: LIDOCAINE HYDROCHLORIDE
     Indication: Local anaesthesia
     Dosage: UNK
     Route: 065
     Dates: start: 20221011

REACTIONS (10)
  - Drug-induced liver injury [Not Recovered/Not Resolved]
  - Brain contusion [Not Recovered/Not Resolved]
  - Cerebral haemorrhage [Not Recovered/Not Resolved]
  - Subarachnoid haemorrhage [Not Recovered/Not Resolved]
  - Hepatic function abnormal [Recovering/Resolving]
  - Anaemia [Recovering/Resolving]
  - Rib fracture [Recovering/Resolving]
  - Irritability [Recovering/Resolving]
  - Malnutrition [Recovering/Resolving]
  - Product use in unapproved indication [Recovering/Resolving]

NARRATIVE: CASE EVENT DATE: 20221003
